FAERS Safety Report 4379181-4 (Version None)
Quarter: 2004Q2

REPORT INFORMATION
  Report Type: 
  Country: None (occurrence: None)
  Receive Date: 20040610
  Receipt Date: 20040603
  Transmission Date: 20050107
  Serious: Yes (Death)
  Sender: FDA-Public Use
  Company Number: US-JNJFOC-20040601513

PATIENT
  Age: 85 Year
  Sex: Female

DRUGS (1)
  1. RISPERDAL [Suspect]
     Dosage: 0.25 MG, ORAL
     Route: 048
     Dates: end: 20040418

REACTIONS (1)
  - DEATH [None]
